FAERS Safety Report 16338686 (Version 4)
Quarter: 2021Q2

REPORT INFORMATION
  Report Type: Other
  Country: US (occurrence: US)
  Receive Date: 20190521
  Receipt Date: 20210524
  Transmission Date: 20210716
  Serious: Yes (Hospitalization, Other)
  Sender: FDA-Public Use
  Company Number: US-ROCHE-2320541

PATIENT
  Age: 70 Year
  Sex: Female
  Weight: 62.65 kg

DRUGS (16)
  1. TOPIRAMATE. [Concomitant]
     Active Substance: TOPIRAMATE
     Indication: MIGRAINE
     Route: 048
  2. OCREVUS [Suspect]
     Active Substance: OCRELIZUMAB
     Indication: RELAPSING-REMITTING MULTIPLE SCLEROSIS
     Dosage: DATE OF TREATMENT: 20/SEP/2017
     Route: 042
     Dates: start: 20170906
  3. TOPAMAX [Concomitant]
     Active Substance: TOPIRAMATE
     Indication: HEADACHE
     Dosage: HS ;ONGOING: YES
     Route: 048
  4. VITAMIN D3 [Concomitant]
     Active Substance: CHOLECALCIFEROL
     Route: 048
  5. ESTRACE [Concomitant]
     Active Substance: ESTRADIOL
     Route: 048
  6. PROTONIX [Concomitant]
     Active Substance: PANTOPRAZOLE SODIUM
     Indication: DYSPEPSIA
     Route: 048
  7. OCREVUS [Suspect]
     Active Substance: OCRELIZUMAB
     Dosage: DATE OF TREATMENT: 07/SEP/2018, 07/MAR/2019, 03/SEP/2019, 05/MAR/2020
     Route: 042
     Dates: start: 20180307, end: 20200910
  8. BENADRYL ALLERGY [Concomitant]
     Active Substance: DIPHENHYDRAMINE HYDROCHLORIDE
  9. TYLENOL [Concomitant]
     Active Substance: ACETAMINOPHEN
  10. EMGALITY [Concomitant]
     Active Substance: GALCANEZUMAB-GNLM
  11. MELOXICAM. [Concomitant]
     Active Substance: MELOXICAM
     Indication: ARTHRALGIA
     Dosage: ONGOING : YES
     Route: 048
  12. SOLU?MEDROL [Concomitant]
     Active Substance: METHYLPREDNISOLONE SODIUM SUCCINATE
  13. OCREVUS [Suspect]
     Active Substance: OCRELIZUMAB
     Route: 042
     Dates: start: 2018
  14. ADDERALL [Concomitant]
     Active Substance: AMPHETAMINE ASPARTATE\AMPHETAMINE SULFATE\DEXTROAMPHETAMINE SACCHARATE\DEXTROAMPHETAMINE SULFATE
  15. IMITREX [Concomitant]
     Active Substance: SUMATRIPTAN SUCCINATE
     Indication: HEADACHE
     Route: 048
  16. VITAMIN B12 [Concomitant]
     Active Substance: CYANOCOBALAMIN

REACTIONS (10)
  - Tympanic membrane perforation [Unknown]
  - Arthralgia [Not Recovered/Not Resolved]
  - Middle ear effusion [Recovered/Resolved]
  - Pneumonia [Recovered/Resolved]
  - Hypoacusis [Not Recovered/Not Resolved]
  - COVID-19 pneumonia [Recovering/Resolving]
  - Peripheral swelling [Not Recovered/Not Resolved]
  - Balance disorder [Unknown]
  - Fatigue [Not Recovered/Not Resolved]
  - Immunodeficiency [Not Recovered/Not Resolved]

NARRATIVE: CASE EVENT DATE: 2018
